FAERS Safety Report 21258580 (Version 1)
Quarter: 2022Q3

REPORT INFORMATION
  Report Type: Spontaneous
  Country: US (occurrence: US)
  Receive Date: 20220826
  Receipt Date: 20220826
  Transmission Date: 20221027
  Serious: No
  Sender: FDA-Public Use
  Company Number: US-BoehringerIngelheim-2022-BI-181625

PATIENT
  Age: 79 Year
  Sex: Male

DRUGS (2)
  1. SPIRIVA RESPIMAT [Suspect]
     Active Substance: TIOTROPIUM BROMIDE
     Indication: Asthma
     Dates: start: 20220712
  2. SPIRIVA RESPIMAT [Suspect]
     Active Substance: TIOTROPIUM BROMIDE
     Route: 055

REACTIONS (5)
  - Dizziness [Recovered/Resolved]
  - Headache [Recovered/Resolved]
  - Cough [Not Recovered/Not Resolved]
  - Choking sensation [Unknown]
  - Off label use [Unknown]

NARRATIVE: CASE EVENT DATE: 20220713
